FAERS Safety Report 14571535 (Version 2)
Quarter: 2018Q1

REPORT INFORMATION
  Report Type: Spontaneous
  Country: US (occurrence: US)
  Receive Date: 20180226
  Receipt Date: 20180323
  Transmission Date: 20180509
  Serious: No
  Sender: FDA-Public Use
  Company Number: US-VERTEX PHARMACEUTICALS-2018-001311

PATIENT
  Age: 2 Year
  Sex: Male

DRUGS (5)
  1. PREDNISOLONE. [Concomitant]
     Active Substance: PREDNISOLONE
  2. KALYDECO [Suspect]
     Active Substance: IVACAFTOR
     Indication: CYSTIC FIBROSIS
     Dosage: 75 MG, BID
     Route: 048
     Dates: start: 20180123
  3. RANITIDINE. [Concomitant]
     Active Substance: RANITIDINE
  4. EPIPEN JR [Concomitant]
     Active Substance: EPINEPHRINE
  5. BAROPHEN [Concomitant]
     Active Substance: ATROPINE SULFATE\HYOSCYAMINE HYDROBROMIDE\PHENOBARBITAL\SCOPOLAMINE HYDROBROMIDE

REACTIONS (3)
  - Cough [Not Recovered/Not Resolved]
  - Mood altered [Unknown]
  - Allergy to arthropod bite [Unknown]

NARRATIVE: CASE EVENT DATE: 201801
